FAERS Safety Report 22594414 (Version 1)
Quarter: 2023Q2

REPORT INFORMATION
  Report Type: Other
  Country: CN (occurrence: None)
  Receive Date: 20230613
  Receipt Date: 20230613
  Transmission Date: 20230722
  Serious: Yes (Other)
  Sender: FDA-Public Use
  Company Number: CN-ROCHE-3364820

PATIENT

DRUGS (2)
  1. ALECTINIB [Suspect]
     Active Substance: ALECTINIB
     Indication: Lung adenocarcinoma
     Dosage: CONTINUE TREATMENT FOR 2 WEEKS AND THEN STOP TREATMENT FOR 1 WEEK, EVERY 3 WEEKS FOR A TREATMENT CYC
     Route: 048
  2. GEMCITABINE [Suspect]
     Active Substance: GEMCITABINE
     Indication: Lung adenocarcinoma
     Dosage: CONTINUE TREATMENT FOR 3WEEKS AND THEN STOP TREATMENT FOR 1 WEEK, EVERY 4 WEEKS FOR A TREATMENT CYCL
     Route: 041

REACTIONS (5)
  - Myelosuppression [Unknown]
  - Vomiting [Unknown]
  - Fatigue [Unknown]
  - Transaminases increased [Unknown]
  - Alopecia [Unknown]
